FAERS Safety Report 5369231-0 (Version None)
Quarter: 2007Q2

REPORT INFORMATION
  Report Type: 
  Country: None (occurrence: None)
  Receive Date: 20070620
  Receipt Date: 20070607
  Transmission Date: 20071010
  Serious: Yes (Disabling, Other)
  Sender: FDA-Public Use
  Company Number: 2007JP000944

PATIENT
  Age: 80 Year
  Sex: Female
  Weight: 36.9 kg

DRUGS (10)
  1. TACROLIMUS CAPSULES (TACROLIMUS CAPSULE) CAPSULES [Suspect]
     Indication: RHEUMATOID ARTHRITIS
     Dosage: SEE IMAGE
     Route: 048
     Dates: start: 20061204, end: 20061227
  2. TACROLIMUS CAPSULES (TACROLIMUS CAPSULE) CAPSULES [Suspect]
     Indication: RHEUMATOID ARTHRITIS
     Dosage: SEE IMAGE
     Route: 048
     Dates: start: 20061228, end: 20070112
  3. TACROLIMUS CAPSULES (TACROLIMUS CAPSULE) CAPSULES [Suspect]
     Indication: RHEUMATOID ARTHRITIS
     Dosage: SEE IMAGE
     Route: 048
     Dates: start: 20070113
  4. VOLTAREN [Suspect]
     Indication: RHEUMATOID ARTHRITIS
     Dosage: 75 MG, ORAL
     Route: 048
     Dates: end: 20061221
  5. PREDNISOLONE [Suspect]
     Indication: RHEUMATOID ARTHRITIS
     Dosage: SEE IMAGE
     Route: 048
     Dates: start: 20061204, end: 20061221
  6. PREDNISOLONE [Suspect]
     Indication: RHEUMATOID ARTHRITIS
     Dosage: SEE IMAGE
     Route: 048
     Dates: end: 20061221
  7. PREDNISOLONE [Suspect]
     Indication: RHEUMATOID ARTHRITIS
     Dosage: SEE IMAGE
     Route: 048
     Dates: start: 20061223
  8. METHOTREXATE [Suspect]
     Indication: RHEUMATOID ARTHRITIS
     Dosage: SEE IMAGE
     Route: 048
     Dates: end: 20061221
  9. METHOTREXATE [Suspect]
     Indication: RHEUMATOID ARTHRITIS
     Dosage: SEE IMAGE
     Route: 048
     Dates: start: 20061229, end: 20070305
  10. AZULFIDINE [Suspect]
     Indication: RHEUMATOID ARTHRITIS
     Dosage: 1 G, ORAL
     Route: 048
     Dates: end: 20061221

REACTIONS (7)
  - ANAEMIA [None]
  - ANGINA PECTORIS [None]
  - FALL [None]
  - GASTRIC ULCER HAEMORRHAGE [None]
  - MUSCULAR WEAKNESS [None]
  - PAIN [None]
  - STRESS [None]
